FAERS Safety Report 4735863-3 (Version None)
Quarter: 2005Q3

REPORT INFORMATION
  Report Type: 
  Country: None (occurrence: None)
  Receive Date: 20050805
  Receipt Date: 20050728
  Transmission Date: 20060218
  Serious: Yes (Other)
  Sender: FDA-Public Use
  Company Number: CA-JNJFOC-20050703249

PATIENT
  Sex: Female
  Weight: 65.77 kg

DRUGS (6)
  1. DURAGESIC-100 [Suspect]
     Route: 062
     Dates: start: 20040909, end: 20040909
  2. VERAPAMIL [Concomitant]
     Route: 048
  3. COUMADIN [Concomitant]
     Indication: ATRIAL FIBRILLATION
     Route: 048
  4. LASIX [Concomitant]
     Route: 048
  5. SLOW-K [Concomitant]
     Route: 048
  6. DOCUSATE [Concomitant]
     Indication: CONSTIPATION
     Route: 048

REACTIONS (1)
  - HYPERSENSITIVITY [None]
